FAERS Safety Report 19291467 (Version 4)
Quarter: 2021Q3

REPORT INFORMATION
  Report Type: Spontaneous
  Country: GB (occurrence: GB)
  Receive Date: 20210523
  Receipt Date: 20210827
  Transmission Date: 20211014
  Serious: Yes (Death, Hospitalization, Other)
  Sender: FDA-Public Use
  Company Number: GB-TEVA-2021-GB-1913335

PATIENT
  Age: 5 Year
  Sex: Male

DRUGS (10)
  1. VINCRISTINE SULFATE. [Suspect]
     Active Substance: VINCRISTINE SULFATE
     Indication: CHEMOTHERAPY
     Dosage: CYCLIC (TWO ROUNDS OF CHEMOTHERAPY)
     Route: 051
     Dates: start: 20191101, end: 20191216
  2. CISPLATIN. [Suspect]
     Active Substance: CISPLATIN
     Indication: CHEMOTHERAPY
     Dosage: CYCLIC (TWO ROUNDS OF CHEMOTHERAPY)
     Route: 051
     Dates: start: 20191101, end: 20191216
  3. CARBOPLATIN. [Concomitant]
     Active Substance: CARBOPLATIN
  4. THIOTEPA. [Concomitant]
     Active Substance: THIOTEPA
  5. VINCRISTINE SULFATE. [Suspect]
     Active Substance: VINCRISTINE SULFATE
     Indication: BRAIN CANCER METASTATIC
  6. CISPLATIN. [Suspect]
     Active Substance: CISPLATIN
     Indication: BRAIN CANCER METASTATIC
  7. CYCLOPHOSPHAMIDE MONOHYDRATE [Suspect]
     Active Substance: CYCLOPHOSPHAMIDE
     Indication: CHEMOTHERAPY
     Route: 051
     Dates: start: 20191101, end: 20191216
  8. VEPESID [Suspect]
     Active Substance: ETOPOSIDE
     Indication: NEOPLASM MALIGNANT
  9. VEPESID [Suspect]
     Active Substance: ETOPOSIDE
     Indication: CHEMOTHERAPY
     Route: 051
     Dates: start: 20191101, end: 20191216
  10. CYCLOPHOSPHAMIDE MONOHYDRATE [Suspect]
     Active Substance: CYCLOPHOSPHAMIDE
     Indication: NEOPLASM MALIGNANT

REACTIONS (21)
  - Headache [Fatal]
  - Death [Fatal]
  - Prolapse [Unknown]
  - Hydrocephalus [Unknown]
  - Abdominal discomfort [Fatal]
  - Feeding disorder [Fatal]
  - Haemorrhage intracranial [Fatal]
  - Haemorrhage intracranial [Fatal]
  - Drug ineffective [Fatal]
  - Mouth ulceration [Fatal]
  - Seizure [Fatal]
  - Intestinal prolapse [Fatal]
  - Rectal prolapse [Fatal]
  - Neutropenic sepsis [Fatal]
  - Pancytopenia [Fatal]
  - Diarrhoea [Fatal]
  - Pain [Fatal]
  - Acute kidney injury [Fatal]
  - Illness [Fatal]
  - Vomiting [Unknown]
  - Malignant neoplasm progression [Unknown]

NARRATIVE: CASE EVENT DATE: 2019
